FAERS Safety Report 11636468 (Version 1)
Quarter: 2015Q4

REPORT INFORMATION
  Report Type: Spontaneous
  Country: US (occurrence: US)
  Receive Date: 20151016
  Receipt Date: 20151016
  Transmission Date: 20160304
  Serious: Yes (Congenital Anomaly)
  Sender: FDA-Public Use
  Company Number: US-BIOGENIDEC-2015BI137048

PATIENT
  Age: 0 Day
  Sex: Female

DRUGS (1)
  1. TYSABRI [Suspect]
     Active Substance: NATALIZUMAB
     Indication: EXPOSURE VIA FATHER
     Route: 064
     Dates: start: 20140328

REACTIONS (3)
  - Foetal exposure during pregnancy [Recovered/Resolved]
  - Milk allergy [Not Recovered/Not Resolved]
  - Gastrointestinal malformation [Not Recovered/Not Resolved]

NARRATIVE: CASE EVENT DATE: 20141125
